FAERS Safety Report 6180431-2 (Version None)
Quarter: 2009Q2

REPORT INFORMATION
  Report Type: 
  Country: None (occurrence: None)
  Receive Date: 20090506
  Receipt Date: 20090427
  Transmission Date: 20091009
  Serious: Yes (Other)
  Sender: FDA-Public Use
  Company Number: JP-JNJFOC-20090300483

PATIENT
  Sex: Male
  Weight: 34 kg

DRUGS (2)
  1. CONCERTA [Suspect]
     Indication: ATTENTION DEFICIT/HYPERACTIVITY DISORDER
     Route: 048
  2. DEPAKENE [Concomitant]
     Indication: PROPHYLAXIS
     Route: 048

REACTIONS (4)
  - ABDOMINAL PAIN [None]
  - ANOREXIA [None]
  - HEADACHE [None]
  - LOSS OF CONSCIOUSNESS [None]
